FAERS Safety Report 7208789-3 (Version None)
Quarter: 2010Q4

REPORT INFORMATION
  Report Type: 
  Country: None (occurrence: None)
  Receive Date: 20101222
  Receipt Date: 20101214
  Transmission Date: 20110411
  Serious: Yes (Hospitalization, Other)
  Sender: FDA-Public Use
  Company Number: 2010SP038554

PATIENT
  Age: 31 Year
  Sex: Female
  Weight: 61.2356 kg

DRUGS (2)
  1. NUVARING [Suspect]
     Indication: CONTRACEPTION
     Dates: start: 20070401, end: 20080901
  2. CHANTIX [Suspect]
     Indication: SMOKING CESSATION THERAPY

REACTIONS (15)
  - ANGINA PECTORIS [None]
  - ASTHMA [None]
  - CONDITION AGGRAVATED [None]
  - DEPRESSION [None]
  - DEVICE EXPULSION [None]
  - GENITAL HERPES [None]
  - HYPERTENSION [None]
  - INTERNATIONAL NORMALISED RATIO DECREASED [None]
  - PAIN [None]
  - PNEUMONITIS [None]
  - PULMONARY EMBOLISM [None]
  - RAYNAUD'S PHENOMENON [None]
  - SKIN INFECTION [None]
  - THROMBOSIS [None]
  - URINARY TRACT INFECTION [None]
